FAERS Safety Report 20869708 (Version 1)
Quarter: 2022Q2

REPORT INFORMATION
  Report Type: Spontaneous
  Country: CN (occurrence: CN)
  Receive Date: 20220525
  Receipt Date: 20220525
  Transmission Date: 20220720
  Serious: Yes (Other)
  Sender: FDA-Public Use
  Company Number: None

PATIENT
  Age: 45 Year
  Sex: Female
  Weight: 55 kg

DRUGS (12)
  1. CYCLOPHOSPHAMIDE [Suspect]
     Active Substance: CYCLOPHOSPHAMIDE
     Indication: Invasive breast carcinoma
     Dosage: QD (FIRST CHEMOTHERAPY)
     Route: 041
  2. CYCLOPHOSPHAMIDE [Suspect]
     Active Substance: CYCLOPHOSPHAMIDE
     Dosage: 0.9 G, QD (SECOND CHEMOTHERAPY; DOSAGE FORM)
     Route: 041
     Dates: start: 20220429, end: 20220429
  3. CYCLOPHOSPHAMIDE [Suspect]
     Active Substance: CYCLOPHOSPHAMIDE
     Dosage: QD (DOSE REINTRODUCED)
     Route: 041
  4. DOCETAXEL [Suspect]
     Active Substance: DOCETAXEL
     Indication: Invasive breast carcinoma
     Dosage: QD (FIRST CHEMOTHERAPY)
     Route: 041
  5. DOCETAXEL [Suspect]
     Active Substance: DOCETAXEL
     Dosage: 110 MG, QD (SECOND CHEMOTHERAPY)
     Route: 041
     Dates: start: 20220429, end: 20220429
  6. DOCETAXEL [Suspect]
     Active Substance: DOCETAXEL
     Dosage: QD (DOSE REINTRODUCED)
     Route: 041
  7. DEXTROSE [Suspect]
     Active Substance: DEXTROSE
     Indication: Medication dilution
     Dosage: QD (FIRST CHEMOTHERAPY: CLOPHOSPHAMIDE + 5% GLUCOSE INJECTION)
     Route: 041
  8. DEXTROSE [Suspect]
     Active Substance: DEXTROSE
     Dosage: QD (FIRST CHEMOTHERAPY: DOCETAXEL INJECTION + 5% GLUCOSE INJECTION)
     Route: 041
  9. DEXTROSE [Suspect]
     Active Substance: DEXTROSE
     Dosage: 500 ML, QD (SECOND CHEMOTHERAPY: CLOPHOSPHAMIDE [0.9 G] + 5% GLUCOSE INJECTION [500 ML])
     Route: 041
     Dates: start: 20220429, end: 20220429
  10. DEXTROSE [Suspect]
     Active Substance: DEXTROSE
     Dosage: 500 ML, QD (SECOND CHEMOTHERAPY: DOCETAXEL INJECTION [110 MG] + 5% GLUCOSE INJECTION [500 ML])
     Route: 041
     Dates: start: 20220429, end: 20220429
  11. DEXTROSE [Suspect]
     Active Substance: DEXTROSE
     Dosage: QD (DOSE REINTRODUCED: CLOPHOSPHAMIDE + 5% GLUCOSE INJECTION)
     Route: 041
  12. DEXTROSE [Suspect]
     Active Substance: DEXTROSE
     Dosage: QD (DOSE REINTRODUCED: DOCETAXEL INJECTION + 5% GLUCOSE INJECTION)
     Route: 041

REACTIONS (4)
  - White blood cell count decreased [Unknown]
  - Neutrophil count decreased [Unknown]
  - Cytopenia [Unknown]
  - Metastasis [Unknown]

NARRATIVE: CASE EVENT DATE: 20220503
